FAERS Safety Report 5408263-0 (Version None)
Quarter: 2007Q3

REPORT INFORMATION
  Report Type: 
  Country: None (occurrence: None)
  Receive Date: 20070806
  Receipt Date: 20070806
  Transmission Date: 20080115
  Serious: Yes (Hospitalization)
  Sender: FDA-Public Use
  Company Number: None

PATIENT
  Age: 80 Year
  Sex: Male

DRUGS (1)
  1. GLYBURIDE [Suspect]
     Indication: DIABETES MELLITUS
     Dosage: 5MG EVERY DAY PO
     Route: 048
     Dates: start: 19961120, end: 20070628

REACTIONS (3)
  - BLOOD CREATININE INCREASED [None]
  - HYPOGLYCAEMIA [None]
  - MENTAL STATUS CHANGES [None]
